FAERS Safety Report 17897439 (Version 1)
Quarter: 2020Q2

REPORT INFORMATION
  Report Type: Spontaneous
  Country: CN (occurrence: CN)
  Receive Date: 20200616
  Receipt Date: 20200616
  Transmission Date: 20200714
  Serious: Yes (Other)
  Sender: FDA-Public Use
  Company Number: CN-ROCHE-2622007

PATIENT
  Age: 73 Year
  Sex: Male

DRUGS (13)
  1. CALCIUM FOLINATE [Concomitant]
     Active Substance: LEUCOVORIN CALCIUM
     Indication: RECTAL CANCER
     Route: 065
     Dates: start: 20190926
  2. OXALIPLATIN. [Concomitant]
     Active Substance: OXALIPLATIN
     Indication: RECTAL CANCER
     Dosage: 3 CYCLES
     Route: 065
     Dates: start: 20181107
  3. XELODA [Suspect]
     Active Substance: CAPECITABINE
     Route: 065
     Dates: start: 20190214
  4. IRITECAN [Concomitant]
     Indication: RECTAL CANCER
     Route: 065
     Dates: start: 20190926
  5. XELODA [Suspect]
     Active Substance: CAPECITABINE
     Indication: RECTAL CANCER
     Dosage: 3 CYCLES
     Route: 065
     Dates: start: 20181107
  6. XELODA [Suspect]
     Active Substance: CAPECITABINE
     Dosage: 3 CYCLES, 1.0 IN THE MORNING AND 1.5 IN THE EVENING
     Route: 065
     Dates: start: 20190320
  7. AVASTIN [Suspect]
     Active Substance: BEVACIZUMAB
     Indication: RECTAL CANCER
     Dosage: 3 CYCLES
     Route: 065
     Dates: start: 20181107
  8. AVASTIN [Suspect]
     Active Substance: BEVACIZUMAB
     Dosage: 4TH CYCLE
     Route: 065
     Dates: start: 20190214
  9. AVASTIN [Suspect]
     Active Substance: BEVACIZUMAB
     Dosage: THREE CYCLES
     Route: 065
     Dates: start: 20190320
  10. AVASTIN [Suspect]
     Active Substance: BEVACIZUMAB
     Route: 065
     Dates: start: 20190925
  11. OXALIPLATIN. [Concomitant]
     Active Substance: OXALIPLATIN
     Dosage: 4TH CYCLE
     Route: 065
     Dates: start: 20190214
  12. FLUOROURACIL. [Concomitant]
     Active Substance: FLUOROURACIL
     Indication: RECTAL CANCER
     Dosage: 0.5 BY INTRAVENOUS INJECTION DAY1 AND 2.8 BY CONTINUOUS INTRAVENOUS INJECTION FOR 46HOURS
     Route: 065
     Dates: start: 20190926
  13. VITAMIN B6 [Concomitant]
     Active Substance: PYRIDOXINE HYDROCHLORIDE
     Indication: PALMAR-PLANTAR ERYTHRODYSAESTHESIA SYNDROME

REACTIONS (3)
  - Radiation pneumonitis [Unknown]
  - Bone marrow failure [Unknown]
  - Immunodeficiency [Unknown]
